FAERS Safety Report 9041102 (Version 1)
Quarter: 2013Q1

REPORT INFORMATION
  Report Type: Spontaneous
  Country: US (occurrence: None)
  Receive Date: 20130114
  Receipt Date: 20130114
  Transmission Date: 20140127
  Serious: No
  Sender: FDA-Public Use
  Company Number: 2013-00001

PATIENT
  Age: 38 Year
  Sex: Female
  Weight: 58.51 kg

DRUGS (1)
  1. ZICAM COLD REMEDY ORAL MIST [Suspect]
     Indication: NASOPHARYNGITIS
     Dosage: EVERY 3-4 HOURS
     Route: 048
     Dates: start: 20121231, end: 20130102

REACTIONS (2)
  - Ageusia [None]
  - Dysgeusia [None]
